FAERS Safety Report 6475237-0 (Version None)
Quarter: 2009Q4

REPORT INFORMATION
  Report Type: 
  Country: None (occurrence: None)
  Receive Date: 20091204
  Receipt Date: 20090402
  Transmission Date: 20100525
  Serious: Yes (Other)
  Sender: FDA-Public Use
  Company Number: BR-ELI_LILLY_AND_COMPANY-BR200904000686

PATIENT
  Age: 57 Year
  Sex: Female

DRUGS (3)
  1. PROZAC [Suspect]
     Indication: AFFECTIVE DISORDER
     Dosage: 20 MG, DAILY (1/D)
     Route: 048
     Dates: start: 19890101
  2. FRONTAL [Concomitant]
     Dosage: 1 MG, DAILY (1/D)
     Route: 065
  3. RIVOTRIL [Concomitant]
     Dosage: 2 MG, DAILY (1/D)
     Route: 065

REACTIONS (7)
  - DYSPNOEA [None]
  - FACIAL BONES FRACTURE [None]
  - FALL [None]
  - FATIGUE [None]
  - SOMNOLENCE [None]
  - TOOTH FRACTURE [None]
  - VISUAL ACUITY REDUCED [None]
